FAERS Safety Report 23642971 (Version 1)
Quarter: 2024Q1

REPORT INFORMATION
  Report Type: Spontaneous
  Country: US (occurrence: US)
  Receive Date: 20240318
  Receipt Date: 20240318
  Transmission Date: 20240410
  Serious: Yes (Other)
  Sender: FDA-Public Use
  Company Number: US-JNJFOC-20240331023

PATIENT
  Age: 56 Year
  Sex: Female

DRUGS (3)
  1. UPTRAVI [Suspect]
     Active Substance: SELEXIPAG
     Indication: Product used for unknown indication
     Route: 048
  2. TYVASO DPI [Suspect]
     Active Substance: TREPROSTINIL
     Indication: Pulmonary arterial hypertension
     Route: 055
  3. OPSUMIT [Concomitant]
     Active Substance: MACITENTAN

REACTIONS (5)
  - Diabetes mellitus [Unknown]
  - Swelling [Unknown]
  - Pyrexia [Unknown]
  - Rhinorrhoea [Unknown]
  - Mood altered [Unknown]

NARRATIVE: CASE EVENT DATE: 20231201
